FAERS Safety Report 23898723 (Version 2)
Quarter: 2024Q2

REPORT INFORMATION
  Report Type: Spontaneous
  Country: FR (occurrence: FR)
  Receive Date: 20240525
  Receipt Date: 20240606
  Transmission Date: 20240715
  Serious: Yes (Other)
  Sender: FDA-Public Use
  Company Number: FR-MEDACSAS-2024000047

PATIENT
  Age: 84 Year
  Sex: Male
  Weight: 74 kg

DRUGS (10)
  1. DAPTOMYCIN [Suspect]
     Active Substance: DAPTOMYCIN
     Indication: Antibiotic therapy
     Dates: start: 20221215
  2. LANSOPRAZOLE [Concomitant]
     Active Substance: LANSOPRAZOLE
     Dosage: 15MG CP (0-0-1)
  3. CEFEPIME [Concomitant]
     Active Substance: CEFEPIME HYDROCHLORIDE
     Dosage: 2G/8H
     Dates: start: 20221215
  4. ASPIRIN [Concomitant]
     Active Substance: ASPIRIN
     Dosage: 160MG SACHET (0-1-0)
  5. FUROSEMIDE [Concomitant]
     Active Substance: FUROSEMIDE
     Dosage: 40MG CP (1-0-0)
  6. BISOPROLOL [Concomitant]
     Active Substance: BISOPROLOL\BISOPROLOL FUMARATE
     Dosage: 2,5MG CP (1-0-0)
  7. APIXABAN [Concomitant]
     Active Substance: APIXABAN
     Dosage: 5MG CP (0-0-1)
  8. ROSUVASTATIN [Concomitant]
     Active Substance: ROSUVASTATIN
     Dosage: 5MG CP (0-0-1)
  9. SACUBITRIL\VALSARTAN [Concomitant]
     Active Substance: SACUBITRIL\VALSARTAN
     Dosage: 48,6/51,4MG CP (1-0-1)
  10. AMIODARONE [Concomitant]
     Active Substance: AMIODARONE
     Dosage: 200MG CP (1-0-0)

REACTIONS (3)
  - Inflammation [Unknown]
  - Eosinophilia [Unknown]
  - Pneumonitis [Unknown]
